FAERS Safety Report 8089441-1 (Version None)
Quarter: 2012Q1

REPORT INFORMATION
  Report Type: 
  Country: None (occurrence: None)
  Receive Date: 20120128
  Receipt Date: 20110823
  Transmission Date: 20120608
  Serious: No
  Sender: FDA-Public Use
  Company Number: US-ABBOTT-11P-163-0725507-00

PATIENT
  Age: 69 Year
  Sex: Female

DRUGS (10)
  1. FORTEO [Concomitant]
     Indication: BONE DENSITY DECREASED
     Dosage: DAILY
     Route: 050
     Dates: start: 20100504
  2. VITAMIN D [Concomitant]
     Indication: PRODUCT USED FOR UNKNOWN INDICATION
  3. GLUCOSAMINE CHONDROITIN [Concomitant]
     Indication: PRODUCT USED FOR UNKNOWN INDICATION
     Dosage: DAILY
  4. BIFERA [Concomitant]
     Indication: MINERAL SUPPLEMENTATION
     Dosage: DAILY
  5. HUMIRA [Suspect]
     Indication: CROHN'S DISEASE
     Dates: start: 20110204
  6. CALCIUM [Concomitant]
     Indication: PRODUCT USED FOR UNKNOWN INDICATION
  7. BIOTIN [Concomitant]
     Indication: PRODUCT USED FOR UNKNOWN INDICATION
  8. METOPROLOL TARTRATE [Concomitant]
     Indication: CARDIAC DISORDER
     Dosage: DAILY
  9. ALIGN PROBIOTIC [Concomitant]
     Indication: PRODUCT USED FOR UNKNOWN INDICATION
     Dosage: DAILY
  10. L-CARNITINE [Concomitant]
     Indication: CROHN'S DISEASE

REACTIONS (2)
  - ABDOMINAL TENDERNESS [None]
  - DRUG INEFFECTIVE [None]
